FAERS Safety Report 23601117 (Version 2)
Quarter: 2024Q1

REPORT INFORMATION
  Report Type: Spontaneous
  Country: CA (occurrence: CA)
  Receive Date: 20240306
  Receipt Date: 20240326
  Transmission Date: 20240410
  Serious: Yes (Other)
  Sender: FDA-Public Use
  Company Number: CA-PFIZER INC-202400056602

PATIENT
  Age: 8 Year
  Sex: Male

DRUGS (3)
  1. SOMATROPIN [Suspect]
     Active Substance: SOMATROPIN
     Indication: Short stature
     Dosage: 1.05 MG GOQUICK 12MG PEN, WEEKLY IN 7 SEPARATE DOSAGES
     Route: 058
     Dates: start: 20230803, end: 202401
  2. SOMATROPIN [Suspect]
     Active Substance: SOMATROPIN
     Dosage: 1.2MG GOQUICK 12MG PEN, WEEKLY IN 7 SEPARATE DOSAGES
     Route: 058
     Dates: start: 202401, end: 2024
  3. SOMATROPIN [Suspect]
     Active Substance: SOMATROPIN
     Dosage: 1.2MG GOQUICK 12MG PEN , WEEKLY IN 6 SEPARATE DOSAGES
     Route: 058
     Dates: start: 2024

REACTIONS (3)
  - Unresponsive to stimuli [Recovered/Resolved]
  - Hypoglycaemia [Recovered/Resolved]
  - Disease recurrence [Recovered/Resolved]

NARRATIVE: CASE EVENT DATE: 20240201
